FAERS Safety Report 5582851-3 (Version None)
Quarter: 2008Q1

REPORT INFORMATION
  Report Type: 
  Country: None (occurrence: None)
  Receive Date: 20080107
  Receipt Date: 20080103
  Transmission Date: 20080703
  Serious: Yes (Death, Hospitalization)
  Sender: FDA-Public Use
  Company Number: FR-ASTRAZENECA-2008CG00002

PATIENT
  Age: 30764 Day
  Sex: Male

DRUGS (6)
  1. INEXIUM [Suspect]
     Route: 048
  2. TRIATEC [Suspect]
     Route: 048
  3. CORDARONE [Suspect]
     Dosage: ONE TABLET FIVE DAYS PER WEEK
     Route: 048
     Dates: start: 20050101, end: 20070904
  4. TAHOR [Suspect]
     Route: 048
  5. PREVISCAN [Suspect]
     Route: 048
     Dates: start: 20050101
  6. NITRODERM [Concomitant]
     Route: 062

REACTIONS (1)
  - INTERSTITIAL LUNG DISEASE [None]
